FAERS Safety Report 6125161-8 (Version None)
Quarter: 2009Q1

REPORT INFORMATION
  Report Type: 
  Country: None (occurrence: None)
  Receive Date: 20090318
  Receipt Date: 20090309
  Transmission Date: 20090719
  Serious: Yes (Other)
  Sender: FDA-Public Use
  Company Number: CHPA2009US06287

PATIENT
  Age: 22 Year
  Sex: Female
  Weight: 81.6 kg

DRUGS (1)
  1. 4 WAY FAST ACTING NASAL SPRAY (NCH) (PHENYLEPHRINE) NASAL SPRAY [Suspect]
     Indication: RHINITIS
     Dosage: 2 DF, 10 TIMES A DAY, NASAL; PRN NASAL
     Route: 045

REACTIONS (6)
  - DRUG DEPENDENCE [None]
  - INTENTIONAL DRUG MISUSE [None]
  - NASAL CONGESTION [None]
  - NASAL DISCOMFORT [None]
  - PARAESTHESIA [None]
  - RHINORRHOEA [None]
